FAERS Safety Report 18652881 (Version 3)
Quarter: 2021Q2

REPORT INFORMATION
  Report Type: Report from Study
  Country: US (occurrence: US)
  Receive Date: 20201223
  Receipt Date: 20210505
  Transmission Date: 20210717
  Serious: Yes (Hospitalization)
  Sender: FDA-Public Use
  Company Number: US-TAKEDA-2020TUS057536

PATIENT
  Age: 65 Year
  Sex: Female

DRUGS (23)
  1. DIPHENHYDRAMINE. [Concomitant]
     Active Substance: DIPHENHYDRAMINE
  2. TRAMADOL. [Concomitant]
     Active Substance: TRAMADOL
  3. NADOLOL. [Concomitant]
     Active Substance: NADOLOL
  4. CHLORTHALIDONE. [Concomitant]
     Active Substance: CHLORTHALIDONE
  5. NITROSTAT [Concomitant]
     Active Substance: NITROGLYCERIN
  6. BUDESONIDE. [Concomitant]
     Active Substance: BUDESONIDE
  7. ACETAMINOPHEN. [Concomitant]
     Active Substance: ACETAMINOPHEN
  8. EPINEPHRINE. [Concomitant]
     Active Substance: EPINEPHRINE
  9. GABAPENTIN. [Concomitant]
     Active Substance: GABAPENTIN
  10. OXYBUTININ ACCORD [Concomitant]
     Active Substance: OXYBUTYNIN
  11. RANEXA [Concomitant]
     Active Substance: RANOLAZINE
  12. LISINOPRIL. [Concomitant]
     Active Substance: LISINOPRIL
  13. AMIKACIN. [Concomitant]
     Active Substance: AMIKACIN
  14. LIDOCAINE. [Concomitant]
     Active Substance: LIDOCAINE
  15. SODIUM CHLORIDE. [Concomitant]
     Active Substance: SODIUM CHLORIDE
  16. ESTRADIOL. [Concomitant]
     Active Substance: ESTRADIOL
  17. HUMAN NORMAL IMMUNOGLOBULIN; LIQUID [Suspect]
     Active Substance: HUMAN IMMUNOGLOBULIN G
     Indication: IMMUNODEFICIENCY COMMON VARIABLE
     Dosage: 50 GRAM, Q4WEEKS
     Route: 042
     Dates: start: 20201028
  18. POTASSIUM [Concomitant]
     Active Substance: POTASSIUM
  19. HUMAN NORMAL IMMUNOGLOBULIN; LIQUID [Suspect]
     Active Substance: HUMAN IMMUNOGLOBULIN G
     Indication: B-LYMPHOCYTE ABNORMALITIES
  20. FIORICET [Concomitant]
     Active Substance: ACETAMINOPHEN\BUTALBITAL\CAFFEINE
  21. OMEPRAZOLE. [Concomitant]
     Active Substance: OMEPRAZOLE
  22. AMLODIPINE [Concomitant]
     Active Substance: AMLODIPINE BESYLATE
  23. CRESTOR [Concomitant]
     Active Substance: ROSUVASTATIN CALCIUM

REACTIONS (3)
  - Cardiac disorder [Unknown]
  - Pharyngitis streptococcal [Unknown]
  - Catheterisation cardiac [Unknown]

NARRATIVE: CASE EVENT DATE: 20201208
